FAERS Safety Report 21020609 (Version 2)
Quarter: 2022Q3

REPORT INFORMATION
  Report Type: Spontaneous
  Country: US (occurrence: US)
  Receive Date: 20220629
  Receipt Date: 20220802
  Transmission Date: 20221026
  Serious: No
  Sender: FDA-Public Use
  Company Number: US-JNJFOC-20220620167

PATIENT
  Age: 58 Year
  Sex: Female
  Weight: 59.020 kg

DRUGS (7)
  1. TREMFYA [Suspect]
     Active Substance: GUSELKUMAB
     Indication: Psoriasis
     Route: 058
     Dates: start: 202202
  2. TREMFYA [Suspect]
     Active Substance: GUSELKUMAB
  3. TREMFYA [Suspect]
     Active Substance: GUSELKUMAB
  4. FISH OIL [Concomitant]
     Active Substance: FISH OIL
  5. VITAMINS [Concomitant]
     Active Substance: VITAMINS
  6. MELOXICAM [Concomitant]
     Active Substance: MELOXICAM
     Indication: Arthritis
  7. TRAMADOL [Concomitant]
     Active Substance: TRAMADOL
     Indication: Pain

REACTIONS (1)
  - Parosmia [Recovered/Resolved]
